FAERS Safety Report 13109428 (Version 3)
Quarter: 2017Q1

REPORT INFORMATION
  Report Type: Spontaneous
  Country: US (occurrence: US)
  Receive Date: 20170112
  Receipt Date: 20170214
  Transmission Date: 20170428
  Serious: Yes (Hospitalization, Other)
  Sender: FDA-Public Use
  Company Number: US-AKORN PHARMACEUTICALS-2017AKN00007

PATIENT
  Age: 45 Year
  Sex: Female

DRUGS (7)
  1. FLUOXETINE [Suspect]
     Active Substance: FLUOXETINE HYDROCHLORIDE
     Indication: DEPRESSION
     Dosage: UNK
  2. AMBIEN [Suspect]
     Active Substance: ZOLPIDEM TARTRATE
     Indication: INSOMNIA
     Dosage: 25 DOSAGE UNITS, ONCE
  3. ALCOHOL. [Suspect]
     Active Substance: ALCOHOL
  4. UNKNOWN BIRTH CONTROL MEDICATION [Suspect]
     Active Substance: UNSPECIFIED INGREDIENT
     Dosage: UNK
     Dates: start: 201610
  5. TRAZODONE [Concomitant]
     Active Substance: TRAZODONE HYDROCHLORIDE
     Indication: INSOMNIA
     Dosage: 50 MG, AS NEEDED
     Route: 048
  6. MYORISAN [Suspect]
     Active Substance: ISOTRETINOIN
     Indication: ROSACEA
     Dosage: 40 MG, 1X/DAY
     Route: 048
     Dates: start: 20161110, end: 20161208
  7. TOPIRAMATE. [Concomitant]
     Active Substance: TOPIRAMATE
     Indication: MIGRAINE
     Dosage: 50 MG, 2X/DAY

REACTIONS (7)
  - Overdose [Recovered/Resolved]
  - Suicide attempt [Recovered/Resolved]
  - Product use issue [Recovered/Resolved]
  - Depression [Recovered/Resolved]
  - Fear [Recovered/Resolved]
  - Mood altered [Recovered/Resolved]
  - Acute respiratory failure [Recovered/Resolved]

NARRATIVE: CASE EVENT DATE: 201612
